FAERS Safety Report 8319569 (Version 2)
Quarter: 2013Q4

REPORT INFORMATION
  Report Type: Spontaneous
  Country: US (occurrence: US)
  Receive Date: 20120103
  Receipt Date: 20131126
  Transmission Date: 20140711
  Serious: Yes (Hospitalization)
  Sender: FDA-Public Use
  Company Number: US-GLAXOSMITHKLINE-A0934711A

PATIENT
  Age: 62 Year
  Sex: Female

DRUGS (3)
  1. AVANDARYL [Suspect]
     Indication: DIABETES MELLITUS
     Route: 048
     Dates: start: 200605, end: 200612
  2. AVANDAMET [Suspect]
     Indication: DIABETES MELLITUS
     Route: 048
     Dates: start: 200612, end: 200711
  3. AVANDIA [Suspect]
     Indication: DIABETES MELLITUS
     Dosage: 4MG PER DAY
     Route: 048
     Dates: start: 200711, end: 200802

REACTIONS (3)
  - Myocardial ischaemia [Not Recovered/Not Resolved]
  - Cerebrovascular accident [Unknown]
  - Heart injury [Unknown]
